FAERS Safety Report 7352959-0 (Version None)
Quarter: 2011Q1

REPORT INFORMATION
  Report Type: 
  Country: None (occurrence: None)
  Receive Date: 20110315
  Receipt Date: 20110310
  Transmission Date: 20110831
  Serious: Yes (Hospitalization)
  Sender: FDA-Public Use
  Company Number: CO-ROCHE-764584

PATIENT
  Sex: Male

DRUGS (2)
  1. MIRCERA [Suspect]
     Route: 058
     Dates: start: 20100129
  2. FENYTOIN [Concomitant]
     Dosage: FREQUENCY: DAILY, DRUG REPORTED AS FENITOIN
     Route: 048

REACTIONS (1)
  - ANAEMIA [None]
